FAERS Safety Report 18459880 (Version 1)
Quarter: 2020Q4

REPORT INFORMATION
  Report Type: Spontaneous
  Country: US (occurrence: US)
  Receive Date: 20201104
  Receipt Date: 20201104
  Transmission Date: 20210114
  Serious: Yes (Life-Threatening, Hospitalization, Other)
  Sender: FDA-Public Use
  Company Number: US-MACLEODS PHARMACEUTICALS US LTD-MAC2020028890

PATIENT

DRUGS (1)
  1. AMLODIPINE 10 MG TABLET [Suspect]
     Active Substance: AMLODIPINE BESYLATE
     Indication: PRODUCT USED FOR UNKNOWN INDICATION
     Dosage: 60 DOSAGE FORM, SINGLE
     Route: 065

REACTIONS (3)
  - Distributive shock [Recovering/Resolving]
  - Intentional overdose [Recovering/Resolving]
  - Tachycardia [Recovering/Resolving]
